FAERS Safety Report 23587791 (Version 1)
Quarter: 2024Q1

REPORT INFORMATION
  Report Type: Other
  Country: TN (occurrence: TN)
  Receive Date: 20240301
  Receipt Date: 20240301
  Transmission Date: 20240410
  Serious: Yes (Hospitalization, Other)
  Sender: FDA-Public Use
  Company Number: TN-Merck Healthcare KGaA-2024009896

PATIENT
  Age: 64 Year
  Sex: Female

DRUGS (2)
  1. METFORMIN [Suspect]
     Active Substance: METFORMIN HYDROCHLORIDE
     Indication: Type 2 diabetes mellitus
  2. INSULIN NOS [Concomitant]
     Active Substance: INSULIN NOS
     Indication: Type 2 diabetes mellitus

REACTIONS (7)
  - Resting tremor [Recovering/Resolving]
  - Urinary incontinence [Unknown]
  - Epilepsy [Recovered/Resolved]
  - Headache [Unknown]
  - Microcytic anaemia [Unknown]
  - Dementia [Recovering/Resolving]
  - Vitamin B12 deficiency [Recovering/Resolving]
